FAERS Safety Report 6722023-X (Version None)
Quarter: 2010Q2

REPORT INFORMATION
  Report Type: 
  Country: None (occurrence: None)
  Receive Date: 20100512
  Receipt Date: 20100427
  Transmission Date: 20101027
  Serious: Yes (Hospitalization)
  Sender: FDA-Public Use
  Company Number: FR-JNJFOC-20100502991

PATIENT
  Sex: Male

DRUGS (11)
  1. IXPRIM [Suspect]
     Indication: ARTHRALGIA
     Route: 048
  2. MYOLASTAN [Suspect]
     Indication: DRUG USE FOR UNKNOWN INDICATION
     Route: 048
  3. METFORMIN HCL [Concomitant]
  4. GLICLAZIDE [Concomitant]
  5. PRETERAX [Concomitant]
  6. ZANIDIP [Concomitant]
  7. PERINDOPRIL [Concomitant]
  8. SYMBICORT [Concomitant]
  9. SPIRIVA [Concomitant]
  10. NEXIUM [Concomitant]
  11. CREON [Concomitant]

REACTIONS (1)
  - TOXIC SKIN ERUPTION [None]
